FAERS Safety Report 26205963 (Version 1)
Quarter: 2025Q4

REPORT INFORMATION
  Report Type: Spontaneous
  Country: EU (occurrence: EU)
  Receive Date: 20251229
  Receipt Date: 20251229
  Transmission Date: 20260117
  Serious: Yes (Hospitalization)
  Sender: TEVA
  Company Number: None

PATIENT
  Age: 69 Year
  Sex: Male
  Weight: 83 kg

DRUGS (1)
  1. PIROXICAM [Suspect]
     Active Substance: PIROXICAM
     Indication: Back pain
     Route: 030
     Dates: start: 20201123, end: 20201126

REACTIONS (1)
  - Acute kidney injury [Recovered/Resolved]

NARRATIVE: CASE EVENT DATE: 20201129
